FAERS Safety Report 5209434-9 (Version None)
Quarter: 2006Q4

REPORT INFORMATION
  Report Type: 
  Country: None (occurrence: None)
  Receive Date: 20061101
  Receipt Date: 20060617
  Transmission Date: 20070319
  Serious: No
  Sender: FDA-Public Use
  Company Number: 2006PV015834

PATIENT
  Age: 62 Year
  Sex: Female

DRUGS (5)
  1. SYMLIN [Suspect]
     Indication: DIABETES MELLITUS INSULIN-DEPENDENT
     Dosage: 45 + 30 + 15 MCG; TID; SC
     Route: 058
     Dates: start: 20060525, end: 20060529
  2. SYMLIN [Suspect]
     Indication: DIABETES MELLITUS INSULIN-DEPENDENT
     Dosage: 45 + 30 + 15 MCG; TID; SC
     Route: 058
     Dates: start: 20060530, end: 20060605
  3. SYMLIN [Suspect]
     Indication: DIABETES MELLITUS INSULIN-DEPENDENT
     Dosage: 45 + 30 + 15 MCG; TID; SC
     Route: 058
     Dates: start: 20060606
  4. NOVOLOG [Concomitant]
  5. LANTUS [Concomitant]

REACTIONS (3)
  - ANOREXIA [None]
  - MEDICATION ERROR [None]
  - NAUSEA [None]
